FAERS Safety Report 18606430 (Version 1)
Quarter: 2020Q4

REPORT INFORMATION
  Report Type: Spontaneous
  Country: US (occurrence: US)
  Receive Date: 20201211
  Receipt Date: 20201211
  Transmission Date: 20210114
  Serious: Yes (Other)
  Sender: FDA-Public Use
  Company Number: US-TEVA-2020-US-1225359

PATIENT
  Age: 63 Year
  Sex: Male

DRUGS (1)
  1. BOSENTAN TEVA [Suspect]
     Active Substance: BOSENTAN
     Route: 065

REACTIONS (6)
  - Heart rate irregular [Unknown]
  - Atrial fibrillation [Unknown]
  - Nasal oedema [Unknown]
  - Gait inability [Unknown]
  - Dizziness [Unknown]
  - Renal disorder [Unknown]
